FAERS Safety Report 5411869-6 (Version None)
Quarter: 2007Q3

REPORT INFORMATION
  Report Type: 
  Country: None (occurrence: None)
  Receive Date: 20070713
  Receipt Date: 20070316
  Transmission Date: 20080115
  Serious: No
  Sender: FDA-Public Use
  Company Number: 2007SP000944

PATIENT
  Age: 54 Year
  Sex: Female
  Weight: 79.8331 kg

DRUGS (5)
  1. LUNESTA [Suspect]
     Indication: INSOMNIA
     Dosage: 3 MG;1X;ORAL
     Route: 048
     Dates: start: 20070313, end: 20070313
  2. CYMBALTA [Concomitant]
  3. LEVOXYL [Concomitant]
  4. FIORINAL W/CODEINE [Concomitant]
  5. PRILOSEC [Concomitant]

REACTIONS (1)
  - CONSTIPATION [None]
